FAERS Safety Report 6086210-9 (Version None)
Quarter: 2009Q1

REPORT INFORMATION
  Report Type: 
  Country: None (occurrence: None)
  Receive Date: 20090218
  Receipt Date: 20090218
  Transmission Date: 20090719
  Serious: Yes (Life-Threatening, Hospitalization)
  Sender: FDA-Public Use
  Company Number: None

PATIENT
  Age: 49 Year
  Sex: Male
  Weight: 108.8633 kg

DRUGS (2)
  1. ULTRAM ER [Suspect]
     Indication: SURGERY
     Dosage: 2 A DAY PO
     Route: 048
     Dates: start: 20090202, end: 20090207
  2. LYRICA [Suspect]
     Indication: SURGERY
     Dosage: 1 A DAY PO
     Route: 048
     Dates: start: 20090202, end: 20090207

REACTIONS (11)
  - BALANCE DISORDER [None]
  - CHEST DISCOMFORT [None]
  - CYANOSIS [None]
  - DIZZINESS [None]
  - DYSPNOEA [None]
  - FEELING ABNORMAL [None]
  - HEADACHE [None]
  - HEART RATE INCREASED [None]
  - NAUSEA [None]
  - PAIN [None]
  - PALPITATIONS [None]
